FAERS Safety Report 5442873-X (Version None)
Quarter: 2007Q3

REPORT INFORMATION
  Report Type: 
  Country: None (occurrence: None)
  Receive Date: 20070831
  Receipt Date: 20070831
  Transmission Date: 20080115
  Serious: Yes (Life-Threatening, Other)
  Sender: FDA-Public Use
  Company Number: None

PATIENT
  Sex: Male
  Weight: 86.1834 kg

DRUGS (3)
  1. ABILIFY [Suspect]
     Indication: DISTURBANCE IN ATTENTION
     Dosage: ONE -ACTUALLY USED HALF- DAILY PO
     Route: 048
     Dates: start: 20030222, end: 20030222
  2. ABILIFY [Suspect]
     Indication: IRRITABILITY
     Dosage: ONE -ACTUALLY USED HALF- DAILY PO
     Route: 048
     Dates: start: 20030222, end: 20030222
  3. METHYLPHENIDATE HCL [Concomitant]

REACTIONS (7)
  - ACTIVITIES OF DAILY LIVING IMPAIRED [None]
  - AGITATED DEPRESSION [None]
  - GAIT DISTURBANCE [None]
  - HALLUCINATION, AUDITORY [None]
  - MASKED FACIES [None]
  - MEDICATION ERROR [None]
  - SPEECH DISORDER [None]
